FAERS Safety Report 6838960-1 (Version None)
Quarter: 2010Q3

REPORT INFORMATION
  Report Type: 
  Country: None (occurrence: None)
  Receive Date: 20100713
  Receipt Date: 20080124
  Transmission Date: 20110219
  Serious: No
  Sender: FDA-Public Use
  Company Number: US-PFIZER INC-2007046115

PATIENT
  Sex: Female
  Weight: 115.7 kg

DRUGS (5)
  1. CHANTIX [Suspect]
     Indication: SMOKING CESSATION THERAPY
     Dates: start: 20070502, end: 20070524
  2. THYROXIN T3 [Concomitant]
     Indication: THYROID DISORDER
  3. ACTOS [Concomitant]
     Indication: DIABETES MELLITUS
  4. FISH OIL [Concomitant]
  5. MULTI-VITAMINS [Concomitant]

REACTIONS (2)
  - MYALGIA [None]
  - OEDEMA [None]
